FAERS Safety Report 7620503-6 (Version None)
Quarter: 2011Q3

REPORT INFORMATION
  Report Type: 
  Country: None (occurrence: None)
  Receive Date: 20110719
  Receipt Date: 20110713
  Transmission Date: 20111222
  Serious: Yes (Death)
  Sender: FDA-Public Use
  Company Number: CA-CELGENEUS-028-21880-11071315

PATIENT
  Sex: Male

DRUGS (11)
  1. LYRICA [Concomitant]
     Route: 065
  2. PANTOPRAZOLE SODIUM [Concomitant]
     Route: 065
  3. FANCYCLOVIR [Concomitant]
     Route: 065
  4. DOCUSATE [Concomitant]
     Route: 065
  5. STATEX [Concomitant]
     Route: 065
  6. DECADRON [Concomitant]
     Route: 065
  7. EURO FOLIC [Concomitant]
     Route: 065
  8. SENNOSIDES [Concomitant]
     Route: 065
  9. REVLIMID [Suspect]
     Indication: MULTIPLE MYELOMA
     Dosage: 25 MILLIGRAM
     Route: 048
     Dates: start: 20110419, end: 20110614
  10. LOVENOX [Concomitant]
     Route: 065
  11. VITAMIN B-12 [Concomitant]
     Route: 065

REACTIONS (1)
  - DEATH [None]
